FAERS Safety Report 24596290 (Version 1)
Quarter: 2024Q4

REPORT INFORMATION
  Report Type: Spontaneous
  Country: US (occurrence: US)
  Receive Date: 20241110
  Receipt Date: 20241110
  Transmission Date: 20250115
  Serious: No
  Sender: SANOFI AVENTIS
  Company Number: US-SA-2024SA297796

PATIENT
  Age: 20 Year
  Sex: Female
  Weight: 48.4 kg

DRUGS (3)
  1. CEREZYME [Suspect]
     Active Substance: IMIGLUCERASE
     Indication: Gaucher^s disease type III
     Dosage: 3200 IU, QOW
     Route: 042
     Dates: start: 200904
  2. CEREZYME [Suspect]
     Active Substance: IMIGLUCERASE
     Dosage: 2800 IU
  3. VPRIV [Concomitant]
     Active Substance: VELAGLUCERASE ALFA
     Dosage: UNK
     Dates: start: 2010

REACTIONS (12)
  - Weight decreased [Unknown]
  - Asthenia [Unknown]
  - Chest pain [Unknown]
  - Arthralgia [Unknown]
  - Memory impairment [Unknown]
  - Sensory loss [Unknown]
  - Dizziness [Unknown]
  - Fatigue [Unknown]
  - Haemoglobin decreased [Unknown]
  - Haematocrit decreased [Unknown]
  - Red cell distribution width increased [Unknown]
  - Blood alkaline phosphatase decreased [Unknown]

NARRATIVE: CASE EVENT DATE: 20220901
